FAERS Safety Report 17407730 (Version 1)
Quarter: 2020Q1

REPORT INFORMATION
  Report Type: Spontaneous
  Country: IN (occurrence: IN)
  Receive Date: 20200212
  Receipt Date: 20200212
  Transmission Date: 20200409
  Serious: Yes (Death, Other)
  Sender: FDA-Public Use
  Company Number: IN-SA-2020SA034555

PATIENT
  Age: 3 Year
  Sex: Male

DRUGS (10)
  1. PROBENECID. [Concomitant]
     Active Substance: PROBENECID
     Dosage: 500 MG/M2 AT 2 AND 8 HOURS AFTER COMPLETION OF CDV INFUSION
  2. ANTI-THYMOCYTE GLOBULIN (RABBIT) NOS [Suspect]
     Active Substance: LAPINE T-LYMPHOCYTE IMMUNE GLOBULIN
     Indication: CONGENITAL DYSERYTHROPOIETIC ANAEMIA
  3. TREOSULFAN [Suspect]
     Active Substance: TREOSULFAN
     Indication: BONE MARROW CONDITIONING REGIMEN
  4. PROBENECID. [Concomitant]
     Active Substance: PROBENECID
     Dosage: 1 G/M2 WAS GIVEN ORALLY 3 HOURS BEFORE CDV INFUSION
     Route: 048
  5. FLUDARABINE PHOSPHATE. [Suspect]
     Active Substance: FLUDARABINE PHOSPHATE
     Indication: CONGENITAL DYSERYTHROPOIETIC ANAEMIA
  6. THIOTEPA. [Suspect]
     Active Substance: THIOTEPA
     Indication: BONE MARROW CONDITIONING REGIMEN
  7. FLUDARABINE PHOSPHATE. [Suspect]
     Active Substance: FLUDARABINE PHOSPHATE
     Indication: BONE MARROW CONDITIONING REGIMEN
  8. ANTI-THYMOCYTE GLOBULIN (RABBIT) NOS [Suspect]
     Active Substance: LAPINE T-LYMPHOCYTE IMMUNE GLOBULIN
     Indication: BONE MARROW CONDITIONING REGIMEN
  9. THIOTEPA. [Suspect]
     Active Substance: THIOTEPA
     Indication: CONGENITAL DYSERYTHROPOIETIC ANAEMIA
  10. TREOSULFAN [Suspect]
     Active Substance: TREOSULFAN
     Indication: CONGENITAL DYSERYTHROPOIETIC ANAEMIA

REACTIONS (14)
  - Mucosal inflammation [Unknown]
  - Off label use [Unknown]
  - Rhinovirus infection [Unknown]
  - Necrotising colitis [Fatal]
  - Acute kidney injury [Unknown]
  - Hyperkalaemia [Fatal]
  - Pleural effusion [Fatal]
  - Proctitis [Unknown]
  - Epstein-Barr virus infection [Fatal]
  - Adenovirus infection [Recovered/Resolved]
  - Lower respiratory tract infection [Unknown]
  - Pneumocystis jirovecii pneumonia [Unknown]
  - Viral infection [Unknown]
  - Pneumonia viral [Fatal]
